FAERS Safety Report 25678029 (Version 1)
Quarter: 2025Q3

REPORT INFORMATION
  Report Type: Report from Study
  Country: US (occurrence: US)
  Receive Date: 20250813
  Receipt Date: 20250813
  Transmission Date: 20251021
  Serious: Yes (Other)
  Sender: GILEAD
  Company Number: US-GILEAD-2025-0711553

PATIENT
  Age: 57 Year
  Sex: Female

DRUGS (3)
  1. SELADELPAR [Suspect]
     Active Substance: SELADELPAR
     Indication: Primary biliary cholangitis
     Dosage: 10 MG, QD
     Route: 048
     Dates: start: 20250121
  2. URSODIOL [Concomitant]
     Active Substance: URSODIOL
     Indication: Primary biliary cholangitis
     Dates: start: 202303
  3. URSODIOL [Concomitant]
     Active Substance: URSODIOL
     Dates: start: 20230301

REACTIONS (19)
  - Road traffic accident [Recovering/Resolving]
  - Sternal fracture [Recovering/Resolving]
  - Sjogren^s syndrome [Not Recovered/Not Resolved]
  - Dry skin [Recovering/Resolving]
  - Pruritus [Recovering/Resolving]
  - Depression [Recovering/Resolving]
  - Energy increased [Not Recovered/Not Resolved]
  - Brain fog [Recovering/Resolving]
  - Rash [Not Recovered/Not Resolved]
  - Alopecia [Not Recovered/Not Resolved]
  - Trichorrhexis [Not Recovered/Not Resolved]
  - Fatigue [Not Recovered/Not Resolved]
  - Weight increased [Not Recovered/Not Resolved]
  - Blood glucose decreased [Recovered/Resolved]
  - Blood alkaline phosphatase increased [Not Recovered/Not Resolved]
  - Skin lesion [Not Recovered/Not Resolved]
  - Dry eye [Not Recovered/Not Resolved]
  - Dry mouth [Not Recovered/Not Resolved]
  - Hepatic enzyme increased [Not Recovered/Not Resolved]

NARRATIVE: CASE EVENT DATE: 20250610
